FAERS Safety Report 18672863 (Version 2)
Quarter: 2021Q2

REPORT INFORMATION
  Report Type: Spontaneous
  Country: TR (occurrence: TR)
  Receive Date: 20201228
  Receipt Date: 20210401
  Transmission Date: 20210717
  Serious: Yes (Other)
  Sender: FDA-Public Use
  Company Number: TR-BAYER-2020-283988

PATIENT
  Age: 23 Year
  Sex: Female
  Weight: 63 kg

DRUGS (4)
  1. YASMIN [Suspect]
     Active Substance: DROSPIRENONE\ETHINYL ESTRADIOL
     Indication: OESTROGEN DEFICIENCY
  2. YASMIN [Suspect]
     Active Substance: DROSPIRENONE\ETHINYL ESTRADIOL
     Indication: MENSTRUAL CYCLE MANAGEMENT
     Dosage: UNK
     Route: 048
     Dates: start: 201412, end: 201912
  3. CYCLO?PROGYNOVA [ESTRADIOL VALERATE\NORGESTREL] [Suspect]
     Active Substance: ESTRADIOL VALERATE\NORGESTREL
     Indication: HORMONE REPLACEMENT THERAPY
     Dosage: UNK
     Route: 048
     Dates: start: 201912
  4. VITAMIN D [VITAMIN D NOS] [Concomitant]
     Active Substance: VITAMIN D NOS

REACTIONS (11)
  - Weight increased [Recovered/Resolved]
  - Blood luteinising hormone increased [Not Recovered/Not Resolved]
  - Therapeutic response unexpected [None]
  - Vitamin D deficiency [Recovered/Resolved]
  - Fertility increased [None]
  - Anti-Muellerian hormone level increased [Not Recovered/Not Resolved]
  - Menstrual disorder [None]
  - Off label use [None]
  - Blood follicle stimulating hormone increased [Not Recovered/Not Resolved]
  - Hypothyroidism [Recovered/Resolved]
  - Product use in unapproved indication [None]

NARRATIVE: CASE EVENT DATE: 2019
